FAERS Safety Report 9391146 (Version 1)
Quarter: 2013Q3

REPORT INFORMATION
  Report Type: Spontaneous
  Country: US (occurrence: None)
  Receive Date: 20130705
  Receipt Date: 20130705
  Transmission Date: 20140515
  Serious: Yes (Other)
  Sender: FDA-Public Use
  Company Number: None

PATIENT
  Age: 33 Year
  Sex: Female

DRUGS (2)
  1. PEGASYS PROCLICK [Suspect]
     Indication: HEPATITIS C
     Dosage: 180 MCG WEEKLY SUBCUTANEOUSLY?04/31/2013 TO 06/08/2013
     Dates: end: 20130608
  2. RIBAVARIN [Suspect]
     Indication: HEPATITIS C
     Dosage: 400MG AM AND PM ORAL?04/31/2013 TO 06/08/2013
     Route: 048
     Dates: end: 20130608

REACTIONS (1)
  - Rash [None]
